FAERS Safety Report 11293832 (Version 1)
Quarter: 2015Q3

REPORT INFORMATION
  Report Type: Spontaneous
  Country: US (occurrence: US)
  Receive Date: 20150722
  Receipt Date: 20150722
  Transmission Date: 20151125
  Serious: No
  Sender: FDA-Public Use
  Company Number: US-AMGEN-USASP2015065262

PATIENT
  Sex: Male

DRUGS (9)
  1. FUROSEMIDE. [Concomitant]
     Active Substance: FUROSEMIDE
     Indication: SLEEP DISORDER
     Dosage: UNK, FOR ABOUT 20 YEARS
  2. CORLANOR [Suspect]
     Active Substance: IVABRADINE HYDROCHLORIDE
     Indication: CARDIAC FAILURE
     Dosage: 2.5 MG, BID
     Route: 065
     Dates: start: 20150624
  3. COREG [Concomitant]
     Active Substance: CARVEDILOL
     Indication: SLEEP DISORDER
     Dosage: UNK, FOR ABOUT 20 YEARS
  4. SPIRONOLACTONE. [Concomitant]
     Active Substance: SPIRONOLACTONE
     Indication: SLEEP DISORDER
     Dosage: UNK, FOR ABOUT 20 YEARS
  5. CRESTOR [Concomitant]
     Active Substance: ROSUVASTATIN CALCIUM
     Indication: SLEEP DISORDER
     Dosage: 40 MG, QD, FOR ABOUT 20 YEARS
  6. NIACIN. [Concomitant]
     Active Substance: NIACIN
     Indication: SLEEP DISORDER
     Dosage: UNK, FOR ABOUT 20 YEARS
  7. ENALAPRIL [Concomitant]
     Active Substance: ENALAPRIL
     Indication: SLEEP DISORDER
     Dosage: 2.5 MG, BID, FOR ABOUT 20 YEARS
  8. WARFARIN [Concomitant]
     Active Substance: WARFARIN
     Indication: SLEEP DISORDER
     Dosage: UNK, FOR ABOUT 20 YEARS
  9. KLONOPIN [Concomitant]
     Active Substance: CLONAZEPAM
     Indication: SLEEP DISORDER
     Dosage: UNK, FOR ABOUT 20 YEARS

REACTIONS (3)
  - Intentional product misuse [Unknown]
  - Drug effect incomplete [Unknown]
  - Heart rate abnormal [Unknown]

NARRATIVE: CASE EVENT DATE: 20150624
